FAERS Safety Report 7094146-X (Version None)
Quarter: 2010Q4

REPORT INFORMATION
  Report Type: 
  Country: None (occurrence: None)
  Receive Date: 20101102
  Receipt Date: 20101025
  Transmission Date: 20110411
  Serious: Yes (Hospitalization, Other)
  Sender: FDA-Public Use
  Company Number: 2010US004431

PATIENT
  Age: 10 Year
  Sex: Male

DRUGS (3)
  1. PROGRAF [Suspect]
     Indication: RENAL TRANSPLANT
  2. MYCOPHENOLATE MOFETIL [Concomitant]
  3. PREDNISONE [Concomitant]

REACTIONS (16)
  - BARTTER'S SYNDROME [None]
  - DEHYDRATION [None]
  - HYPERCALCIURIA [None]
  - HYPERPHOSPHATURIA [None]
  - HYPOCALCAEMIA [None]
  - HYPOCHLORAEMIA [None]
  - HYPONATRAEMIA [None]
  - HYPOPHOSPHATAEMIA [None]
  - KIDNEY TRANSPLANT REJECTION [None]
  - METABOLIC ALKALOSIS [None]
  - POLYDIPSIA [None]
  - POLYURIA [None]
  - PROTEINURIA [None]
  - RENAL TUBULAR DISORDER [None]
  - URINE POTASSIUM INCREASED [None]
  - VOMITING [None]
